FAERS Safety Report 5950668-3 (Version None)
Quarter: 2008Q4

REPORT INFORMATION
  Report Type: 
  Country: None (occurrence: None)
  Receive Date: 20081022
  Receipt Date: 20080617
  Transmission Date: 20090506
  Serious: No
  Sender: FDA-Public Use
  Company Number: ALL1-2008-01809

PATIENT

DRUGS (1)
  1. VYVANSE [Suspect]
     Dosage: 30 MG, 2X/DAY:BID,ORAL
     Route: 048

REACTIONS (2)
  - ANXIETY [None]
  - INAPPROPRIATE SCHEDULE OF DRUG ADMINISTRATION [None]
